FAERS Safety Report 9759107 (Version 2)
Quarter: 2013Q4

REPORT INFORMATION
  Report Type: Spontaneous
  Country: DE (occurrence: DE)
  Receive Date: 20131216
  Receipt Date: 20131216
  Transmission Date: 20140711
  Serious: Yes (Other)
  Sender: FDA-Public Use
  Company Number: DE-ASTELLAS-2013EU010886

PATIENT
  Age: 80 Year
  Sex: Male

DRUGS (6)
  1. XTANDI [Suspect]
     Dosage: UNK
     Route: 065
  2. ENALAPRIL [Concomitant]
     Dosage: 10 MG, OTHER
     Route: 065
  3. AMLODIPIN                          /00972401/ [Concomitant]
     Dosage: 5 MG, UID/QD
     Route: 065
  4. IBUPROFEN [Concomitant]
     Dosage: 800 MG, PRN
     Route: 065
  5. ASS [Concomitant]
     Dosage: 100 MG, UID/QD
     Route: 065
  6. NIFEDIPIN [Concomitant]
     Dosage: 10 MG, PRN
     Route: 065

REACTIONS (2)
  - Hypoaesthesia [Unknown]
  - Loss of control of legs [Unknown]
